FAERS Safety Report 5072143-3 (Version None)
Quarter: 2006Q3

REPORT INFORMATION
  Report Type: 
  Country: None (occurrence: None)
  Receive Date: 20060807
  Receipt Date: 20060802
  Transmission Date: 20061208
  Serious: Yes (Death, Other)
  Sender: FDA-Public Use
  Company Number: PHEH2006US09851

PATIENT
  Age: 25 Year
  Sex: Male

DRUGS (2)
  1. FOLIC ACID [Concomitant]
  2. EXJADE [Suspect]
     Indication: SICKLE CELL ANAEMIA
     Dosage: 1000 MG, QD
     Route: 048
     Dates: start: 20060323

REACTIONS (9)
  - CARDIAC FAILURE [None]
  - DEAFNESS [None]
  - HEPATIC FAILURE [None]
  - MULTI-ORGAN FAILURE [None]
  - NAUSEA [None]
  - RASH [None]
  - RENAL FAILURE [None]
  - SERUM FERRITIN INCREASED [None]
  - VOMITING [None]
